FAERS Safety Report 24015349 (Version 8)
Quarter: 2025Q1

REPORT INFORMATION
  Report Type: Spontaneous
  Country: US (occurrence: US)
  Receive Date: 20240626
  Receipt Date: 20250101
  Transmission Date: 20250409
  Serious: Yes (Other)
  Sender: BRISTOL-MYERS SQUIBB COMPANY
  Company Number: US-BRISTOL-MYERS SQUIBB COMPANY-2024-100298

PATIENT
  Age: 80 Year
  Sex: Male
  Weight: 98.4 kg

DRUGS (4)
  1. REVLIMID [Suspect]
     Active Substance: LENALIDOMIDE
     Indication: Follicular lymphoma
     Dosage: TAKE 1 CAPSULE BY MOUTH EVERY DAY TAKE 3 WEEKS ON AND 1 WEEK OFF
     Route: 048
     Dates: start: 20240611
  2. REVLIMID [Suspect]
     Active Substance: LENALIDOMIDE
     Dosage: EVERY OTHER DAY FOR 21 DAYS INSTEAD OF TAKING 21 DAYS THEN 7 DAYS OFF OUT OF A 28 DAY
     Route: 048
  3. REVLIMID [Suspect]
     Active Substance: LENALIDOMIDE
     Dosage: TAKE 1 CAPSULE BY MOUTH EVERY OTHER DAY TAKE 3 WEEKS ON AND 1 WEEK OFF
     Route: 048
  4. OBINUTUZUMAB [Suspect]
     Active Substance: OBINUTUZUMAB
     Indication: Follicular lymphoma

REACTIONS (19)
  - Renal impairment [Recovered/Resolved]
  - Headache [Unknown]
  - Balance disorder [Unknown]
  - Taste disorder [Not Recovered/Not Resolved]
  - Off label use [Unknown]
  - Pneumonia [Recovered/Resolved]
  - Streptococcal infection [Recovered/Resolved]
  - Neck pain [Unknown]
  - Myalgia [Unknown]
  - Paraesthesia [Not Recovered/Not Resolved]
  - Constipation [Not Recovered/Not Resolved]
  - Asthenia [Unknown]
  - Fatigue [Unknown]
  - Rash [Unknown]
  - Pruritus [Unknown]
  - Sleep disorder [Unknown]
  - Blood calcium decreased [Unknown]
  - Blood potassium decreased [Unknown]
  - Rash pruritic [Not Recovered/Not Resolved]

NARRATIVE: CASE EVENT DATE: 20240101
